FAERS Safety Report 18685600 (Version 2)
Quarter: 2021Q1

REPORT INFORMATION
  Report Type: Spontaneous
  Country: CN (occurrence: CN)
  Receive Date: 20201230
  Receipt Date: 20210105
  Transmission Date: 20210419
  Serious: Yes (Hospitalization, Other)
  Sender: FDA-Public Use
  Company Number: CN-PFIZER INC-2020514291

PATIENT
  Age: 81 Year
  Sex: Male
  Weight: 58 kg

DRUGS (11)
  1. SOLU?MEDROL [Suspect]
     Active Substance: METHYLPREDNISOLONE SODIUM SUCCINATE
     Indication: ATRIAL FIBRILLATION
  2. FUROSEMIDE. [Suspect]
     Active Substance: FUROSEMIDE
     Indication: CARDIAC FAILURE ACUTE
     Dosage: 20 MG, 1X/DAY
     Route: 042
     Dates: start: 20201211
  3. COMPOUND GLYCYRRHIZIN INJECTION (CYSTEINE\GLYCINE\GLYCYRRHIZIN) [Suspect]
     Active Substance: CYSTEINE\GLYCINE\GLYCYRRHIZIN
     Indication: LIVER INJURY
  4. SOLU?MEDROL [Suspect]
     Active Substance: METHYLPREDNISOLONE SODIUM SUCCINATE
     Indication: LIVER INJURY
  5. FUROSEMIDE. [Suspect]
     Active Substance: FUROSEMIDE
     Indication: LIVER INJURY
  6. COMPOUND GLYCYRRHIZIN INJECTION (CYSTEINE\GLYCINE\GLYCYRRHIZIN) [Suspect]
     Active Substance: CYSTEINE\GLYCINE\GLYCYRRHIZIN
     Indication: ANTIINFLAMMATORY THERAPY
  7. FUROSEMIDE. [Suspect]
     Active Substance: FUROSEMIDE
     Indication: ATRIAL FIBRILLATION
  8. SOLU?MEDROL [Suspect]
     Active Substance: METHYLPREDNISOLONE SODIUM SUCCINATE
     Indication: CARDIAC FAILURE ACUTE
     Dosage: 80 MG, 1X/DAY
     Route: 041
     Dates: start: 20201216, end: 20201216
  9. COMPOUND GLYCYRRHIZIN INJECTION (CYSTEINE\GLYCINE\GLYCYRRHIZIN) [Suspect]
     Active Substance: CYSTEINE\GLYCINE\GLYCYRRHIZIN
     Indication: CARDIAC FAILURE ACUTE
     Dosage: 160 MG, 1X/DAY
     Route: 041
     Dates: start: 20201208
  10. COMPOUND GLYCYRRHIZIN INJECTION (CYSTEINE\GLYCINE\GLYCYRRHIZIN) [Suspect]
     Active Substance: CYSTEINE\GLYCINE\GLYCYRRHIZIN
     Indication: PROPHYLAXIS
  11. COMPOUND GLYCYRRHIZIN INJECTION (CYSTEINE\GLYCINE\GLYCYRRHIZIN) [Suspect]
     Active Substance: CYSTEINE\GLYCINE\GLYCYRRHIZIN
     Indication: ATRIAL FIBRILLATION

REACTIONS (5)
  - Asthenia [Unknown]
  - Torsade de pointes [Unknown]
  - Electrocardiogram QRS complex prolonged [Unknown]
  - Hypokalaemia [Recovering/Resolving]
  - Mental fatigue [Unknown]

NARRATIVE: CASE EVENT DATE: 20201217
